FAERS Safety Report 5738818-5 (Version None)
Quarter: 2008Q2

REPORT INFORMATION
  Report Type: 
  Country: None (occurrence: None)
  Receive Date: 20080515
  Receipt Date: 20080320
  Transmission Date: 20081010
  Serious: No
  Sender: FDA-Public Use
  Company Number: A0716722A

PATIENT
  Age: 54 Year
  Sex: Female

DRUGS (1)
  1. VERAMYST [Suspect]
     Route: 045
     Dates: start: 20070901

REACTIONS (3)
  - DIZZINESS [None]
  - DRUG INEFFECTIVE [None]
  - NAUSEA [None]
